FAERS Safety Report 4942984-9 (Version None)
Quarter: 2006Q1

REPORT INFORMATION
  Report Type: 
  Country: None (occurrence: None)
  Receive Date: 20060314
  Receipt Date: 20060309
  Transmission Date: 20060701
  Serious: Yes (Hospitalization)
  Sender: FDA-Public Use
  Company Number: 2006EN00070

PATIENT
  Age: 42 Year
  Sex: Male
  Weight: 88 kg

DRUGS (14)
  1. EPIVIR [Suspect]
     Indication: HIV INFECTION
     Dosage: 150MG TWICE PER DAY
     Route: 048
     Dates: start: 20060203
  2. RETROVIR [Suspect]
     Indication: HIV INFECTION
     Dosage: 300MG TWICE PER DAY
     Route: 048
     Dates: start: 20060203
  3. ABELCET [Suspect]
     Dosage: 400MG PER DAY
     Route: 042
     Dates: start: 20060203, end: 20060217
  4. GANCICLOVIR [Suspect]
     Indication: CYTOMEGALOVIRUS INFECTION
     Dosage: 110MG VARIABLE DOSE
     Route: 042
     Dates: start: 20060209, end: 20060215
  5. CRIXIVAN [Concomitant]
     Dates: start: 20060203
  6. ATIVAN [Concomitant]
  7. NEUMEGA [Concomitant]
  8. INSULIN [Concomitant]
  9. PROSTATE MEDICATION [Concomitant]
  10. PULMOCARE [Concomitant]
  11. PEPCID [Concomitant]
  12. SOLU-MEDROL [Concomitant]
  13. SPIRIVA [Concomitant]
  14. XOPENEX [Concomitant]

REACTIONS (4)
  - BLOOD CREATININE INCREASED [None]
  - BLOOD UREA INCREASED [None]
  - CYTOMEGALOVIRUS INFECTION [None]
  - RENAL IMPAIRMENT [None]
